FAERS Safety Report 5332829-X (Version None)
Quarter: 2007Q2

REPORT INFORMATION
  Report Type: 
  Country: None (occurrence: None)
  Receive Date: 20070521
  Receipt Date: 20070504
  Transmission Date: 20071010
  Serious: Yes (Hospitalization, Other)
  Sender: FDA-Public Use
  Company Number: PAR_1264_2007

PATIENT
  Age: 61 Year
  Sex: Male

DRUGS (7)
  1. IBUPROFEN [Suspect]
     Indication: BACK PAIN
  2. ACETYLSALICYLIC ACID SRT [Suspect]
     Indication: GENERAL SYMPTOM
  3. ACEBUTOLOL HYDROCHLORIDE [Concomitant]
  4. FOLATE SODIUM [Concomitant]
  5. OMEGA 3 [Concomitant]
  6. PANTOPRAZOLE SODIUM [Concomitant]
  7. VALSARTAN [Concomitant]

REACTIONS (2)
  - ASTHENIA [None]
  - IRON DEFICIENCY ANAEMIA [None]
